FAERS Safety Report 24695379 (Version 2)
Quarter: 2024Q4

REPORT INFORMATION
  Report Type: Spontaneous
  Country: IN (occurrence: IN)
  Receive Date: 20241204
  Receipt Date: 20241208
  Transmission Date: 20250114
  Serious: Yes (Other)
  Sender: AMGEN
  Company Number: IN-PFIZER INC-PV202400153683

PATIENT

DRUGS (1)
  1. ETANERCEPT [Suspect]
     Active Substance: ETANERCEPT
     Indication: Acute graft versus host disease
     Dosage: 0.4 MG/KG, 2X/WEEK
     Route: 058

REACTIONS (2)
  - Cytopenia [Unknown]
  - Viral infection [Unknown]
